FAERS Safety Report 9329928 (Version 1)
Quarter: 2013Q2

REPORT INFORMATION
  Report Type: Report from Study
  Country: NL (occurrence: NL)
  Receive Date: 20130604
  Receipt Date: 20130604
  Transmission Date: 20140414
  Serious: Yes (Hospitalization)
  Sender: FDA-Public Use
  Company Number: NL-TEVA-409138ISR

PATIENT
  Age: 62 Year
  Sex: Female

DRUGS (7)
  1. MYOCET [Suspect]
     Dosage: 0 MILLIGRAM DAILY;
  2. PACLITAXEL [Suspect]
     Indication: BREAST CANCER METASTATIC
     Dosage: 144 MILLIGRAM DAILY;
     Route: 042
     Dates: start: 20110728, end: 20110901
  3. BEVACIZUMAB [Suspect]
     Dosage: 525 MILLIGRAM DAILY;
     Route: 042
     Dates: start: 20110728, end: 20110901
  4. THYRAX [Concomitant]
     Dosage: .1 MILLIGRAM DAILY;
     Dates: start: 20101014
  5. ATENOLOL [Concomitant]
     Dosage: 25 MILLIGRAM DAILY;
     Dates: start: 19950101
  6. LOSARTAN [Concomitant]
     Dosage: 100 MICROGRAM DAILY;
     Dates: start: 19950101
  7. OMEPRAZOL [Concomitant]
     Dosage: 20 MILLIGRAM DAILY;
     Dates: start: 20090101

REACTIONS (1)
  - Oesophagobronchial fistula [Recovered/Resolved with Sequelae]
